FAERS Safety Report 16887368 (Version 1)
Quarter: 2019Q4

REPORT INFORMATION
  Report Type: Report from Study
  Country: IE (occurrence: IE)
  Receive Date: 20191004
  Receipt Date: 20191004
  Transmission Date: 20200122
  Serious: Yes (Other)
  Sender: FDA-Public Use
  Company Number: IE-JNJFOC-20191002566

PATIENT
  Age: 68 Year
  Sex: Male

DRUGS (7)
  1. PREDNISOLONE. [Concomitant]
     Active Substance: PREDNISOLONE
     Route: 050
  2. ZYTIGA [Suspect]
     Active Substance: ABIRATERONE ACETATE
     Indication: PROSTATE CANCER METASTATIC
     Route: 048
     Dates: start: 20181112
  3. LOSEC [Concomitant]
     Active Substance: OMEPRAZOLE
     Route: 050
  4. INVOKANA [Concomitant]
     Active Substance: CANAGLIFLOZIN
     Route: 050
  5. FORXIGA [Concomitant]
     Active Substance: DAPAGLIFLOZIN
     Route: 050
  6. CALCICHEW-D3 FORTE [Concomitant]
     Active Substance: CALCIUM\CHOLECALCIFEROL
     Route: 050
  7. PERINDOPRIL [Concomitant]
     Active Substance: PERINDOPRIL
     Route: 050

REACTIONS (1)
  - Lower respiratory tract infection [Not Recovered/Not Resolved]

NARRATIVE: CASE EVENT DATE: 20190930
